FAERS Safety Report 4868223-5 (Version None)
Quarter: 2005Q4

REPORT INFORMATION
  Report Type: 
  Country: None (occurrence: None)
  Receive Date: 20051223
  Receipt Date: 20051213
  Transmission Date: 20060501
  Serious: Yes (Other)
  Sender: FDA-Public Use
  Company Number: 2005168000

PATIENT
  Age: 64 Year
  Sex: Female
  Weight: 64.4108 kg

DRUGS (4)
  1. ZITHROMAX [Suspect]
     Indication: BRONCHITIS
     Dosage: (ONCE), ORAL
     Route: 048
     Dates: start: 20051123, end: 20051123
  2. BENADRYL [Concomitant]
  3. TRANDATE [Concomitant]
  4. ASPIRIN (ACTYLSALICYLIC ACID) [Concomitant]

REACTIONS (4)
  - HYPERTENSION [None]
  - RASH GENERALISED [None]
  - SWELLING FACE [None]
  - URTICARIA [None]
